FAERS Safety Report 16794967 (Version 2)
Quarter: 2021Q1

REPORT INFORMATION
  Report Type: Spontaneous
  Country: US (occurrence: US)
  Receive Date: 20190911
  Receipt Date: 20210114
  Transmission Date: 20210419
  Serious: No
  Sender: FDA-Public Use
  Company Number: US-PFIZER INC-2019390851

PATIENT
  Age: 62 Year
  Sex: Female

DRUGS (1)
  1. XELJANZ [Suspect]
     Active Substance: TOFACITINIB CITRATE
     Dosage: UNK (5 MG)

REACTIONS (5)
  - Dyschezia [Unknown]
  - Therapeutic response unexpected [Unknown]
  - Abdominal distension [Unknown]
  - Pre-existing condition improved [Unknown]
  - Discomfort [Unknown]
